FAERS Safety Report 16837451 (Version 1)
Quarter: 2019Q3

REPORT INFORMATION
  Report Type: Spontaneous
  Country: US (occurrence: US)
  Receive Date: 20190923
  Receipt Date: 20190923
  Transmission Date: 20191005
  Serious: No
  Sender: FDA-Public Use
  Company Number: US-009507513-1909USA004028

PATIENT
  Age: 43 Year
  Sex: Female
  Weight: 133.33 kg

DRUGS (2)
  1. NEXPLANON [Suspect]
     Active Substance: ETONOGESTREL
     Dosage: ROD, 68 MILLIGRAM, ARM
     Route: 059
     Dates: start: 20190909
  2. NEXPLANON [Suspect]
     Active Substance: ETONOGESTREL
     Dosage: ROD, 68 MILLIGRAM, ARM
     Route: 059
     Dates: start: 20190904, end: 20190906

REACTIONS (3)
  - Device expulsion [Recovered/Resolved]
  - Medical device site discomfort [Unknown]
  - Wrong technique in device usage process [Unknown]

NARRATIVE: CASE EVENT DATE: 20190906
